FAERS Safety Report 5906333-1 (Version None)
Quarter: 2008Q4

REPORT INFORMATION
  Report Type: 
  Country: None (occurrence: None)
  Receive Date: 20081002
  Receipt Date: 20080520
  Transmission Date: 20090506
  Serious: No
  Sender: FDA-Public Use
  Company Number: US-ABBOTT-08P-163-0455667-00

PATIENT
  Age: 40 Year
  Sex: Male

DRUGS (1)
  1. TRICOR [Suspect]
     Indication: BLOOD TRIGLYCERIDES INCREASED
     Dosage: NOT REPORTED

REACTIONS (9)
  - ANXIETY [None]
  - BACK PAIN [None]
  - CHEST DISCOMFORT [None]
  - COUGH [None]
  - DYSPEPSIA [None]
  - HEADACHE [None]
  - NAUSEA [None]
  - NECK PAIN [None]
  - SLEEP DISORDER [None]
